FAERS Safety Report 5840787-4 (Version None)
Quarter: 2008Q3

REPORT INFORMATION
  Report Type: 
  Country: None (occurrence: None)
  Receive Date: 20080731
  Receipt Date: 20080512
  Transmission Date: 20090109
  Serious: No
  Sender: FDA-Public Use
  Company Number: US200805001815

PATIENT
  Age: 55 Year
  Sex: Female
  Weight: 81.6 kg

DRUGS (7)
  1. BYETTA [Suspect]
     Indication: TYPE 2 DIABETES MELLITUS
     Dosage: 10 UG, DAILY (1/D), SUBCUTANEOUS; 10 UG, 2/D, SUBCUTANEOUS; 10 UG, DAILY (1/D), SUBCUTANEOUS
     Route: 058
     Dates: start: 20080429, end: 20080507
  2. BYETTA [Suspect]
     Indication: TYPE 2 DIABETES MELLITUS
     Dosage: 10 UG, DAILY (1/D), SUBCUTANEOUS; 10 UG, 2/D, SUBCUTANEOUS; 10 UG, DAILY (1/D), SUBCUTANEOUS
     Route: 058
     Dates: start: 20080508, end: 20080508
  3. BYETTA [Suspect]
     Indication: TYPE 2 DIABETES MELLITUS
     Dosage: 10 UG, DAILY (1/D), SUBCUTANEOUS; 10 UG, 2/D, SUBCUTANEOUS; 10 UG, DAILY (1/D), SUBCUTANEOUS
     Route: 058
     Dates: start: 20080509
  4. DRUG USED IN DIABETES [Concomitant]
  5. AMARYL [Concomitant]
  6. GLUCOPHAGE [Concomitant]
  7. VITAMIN TAB [Concomitant]

REACTIONS (11)
  - ABDOMINAL DISTENSION [None]
  - ASTHENIA [None]
  - BLOOD GLUCOSE DECREASED [None]
  - CONFUSIONAL STATE [None]
  - FEELING DRUNK [None]
  - INCORRECT DOSE ADMINISTERED [None]
  - LIBIDO INCREASED [None]
  - NAUSEA [None]
  - RASH [None]
  - VISUAL IMPAIRMENT [None]
  - VOMITING [None]
